FAERS Safety Report 12328303 (Version 1)
Quarter: 2016Q2

REPORT INFORMATION
  Report Type: Spontaneous
  Country: DE (occurrence: DE)
  Receive Date: 20160503
  Receipt Date: 20160503
  Transmission Date: 20160815
  Serious: Yes (Other)
  Sender: FDA-Public Use
  Company Number: DE-BAYER-2016-084659

PATIENT
  Sex: Female

DRUGS (1)
  1. JAYDESS [Suspect]
     Active Substance: LEVONORGESTREL
     Indication: CONTRACEPTION
     Dosage: 14 MCG/24HR, CONT
     Route: 015
     Dates: start: 201506, end: 201510

REACTIONS (4)
  - Vulvovaginal mycotic infection [None]
  - Vaginal discharge [None]
  - Cervical dysplasia [None]
  - Metrorrhagia [None]

NARRATIVE: CASE EVENT DATE: 2015
